FAERS Safety Report 12240945 (Version 2)
Quarter: 2016Q2

REPORT INFORMATION
  Report Type: Spontaneous
  Country: US (occurrence: US)
  Receive Date: 20160406
  Receipt Date: 20160411
  Transmission Date: 20160815
  Serious: No
  Sender: FDA-Public Use
  Company Number: US-HORIZON-PEN-0158-2016

PATIENT
  Sex: Female

DRUGS (3)
  1. PENNSAID [Suspect]
     Active Substance: DICLOFENAC SODIUM
     Indication: PAIN IN EXTREMITY
     Dosage: BID
     Dates: start: 20160105
  2. ALLEGRA [Concomitant]
     Active Substance: FEXOFENADINE HYDROCHLORIDE
  3. EVISTA [Concomitant]
     Active Substance: RALOXIFENE HYDROCHLORIDE

REACTIONS (2)
  - Off label use [Unknown]
  - Drug ineffective [Unknown]

NARRATIVE: CASE EVENT DATE: 20160211
